FAERS Safety Report 24067008 (Version 2)
Quarter: 2024Q4

REPORT INFORMATION
  Report Type: Spontaneous
  Country: BE (occurrence: BE)
  Receive Date: 20240709
  Receipt Date: 20241011
  Transmission Date: 20250115
  Serious: Yes (Other)
  Sender: NOVARTIS
  Company Number: BE-002147023-NVSC2024BE133324

PATIENT
  Age: 61 Year

DRUGS (3)
  1. SANDOSTATIN LAR DEPOT [Suspect]
     Active Substance: OCTREOTIDE ACETATE
     Indication: Pancreatic disorder
     Dosage: 20 MG, Q3W
     Route: 065
     Dates: start: 20230728
  2. SANDOSTATIN LAR DEPOT [Suspect]
     Active Substance: OCTREOTIDE ACETATE
  3. SANDOSTATIN LAR DEPOT [Suspect]
     Active Substance: OCTREOTIDE ACETATE

REACTIONS (5)
  - Malaise [Unknown]
  - Irritability [Unknown]
  - Eating disorder [Unknown]
  - Incorrect dose administered by device [Unknown]
  - Device occlusion [Unknown]
